APPROVED DRUG PRODUCT: CALCIPOTRIENE
Active Ingredient: CALCIPOTRIENE
Strength: 0.005%
Dosage Form/Route: OINTMENT;TOPICAL
Application: A090633 | Product #001 | TE Code: AB
Applicant: GLENMARK PHARMACEUTICALS INC USA
Approved: Mar 24, 2010 | RLD: No | RS: Yes | Type: RX